FAERS Safety Report 19546882 (Version 5)
Quarter: 2022Q2

REPORT INFORMATION
  Report Type: Report from Study
  Country: CN (occurrence: CN)
  Receive Date: 20210714
  Receipt Date: 20220406
  Transmission Date: 20220720
  Serious: Yes (Life-Threatening, Hospitalization)
  Sender: FDA-Public Use
  Company Number: CN-TEVA-2021-CN-1930711

PATIENT
  Age: 61 Year
  Sex: Female

DRUGS (53)
  1. BENDAMUSTINE [Suspect]
     Active Substance: BENDAMUSTINE
     Indication: Diffuse large B-cell lymphoma
     Route: 042
     Dates: start: 20201202
  2. POLATUZUMAB VEDOTIN [Suspect]
     Active Substance: POLATUZUMAB VEDOTIN
     Indication: Diffuse large B-cell lymphoma
     Dosage: DATE OF MOST RECENT DOSE (99.0 MG) PRIOR TO ADVERSE EVENT: 01/DEC/2020 (140 MG,1 IN 21 D)
     Route: 042
     Dates: start: 20201202
  3. RITUXIMAB [Suspect]
     Active Substance: RITUXIMAB
     Indication: Diffuse large B-cell lymphoma
     Dosage: (592.5 MG,1 IN 21 D)
     Route: 041
     Dates: start: 20201201
  4. CALCIUM CHLORIDE\POTASSIUM CHLORIDE\SODIUM CHLORIDE [Concomitant]
     Active Substance: CALCIUM CHLORIDE\POTASSIUM CHLORIDE\SODIUM CHLORIDE
     Route: 065
     Dates: start: 20201130, end: 20201203
  5. CALCIUM CHLORIDE\POTASSIUM CHLORIDE\SODIUM CHLORIDE [Concomitant]
     Active Substance: CALCIUM CHLORIDE\POTASSIUM CHLORIDE\SODIUM CHLORIDE
     Route: 065
     Dates: start: 20201221, end: 20201221
  6. CALCIUM CHLORIDE\POTASSIUM CHLORIDE\SODIUM CHLORIDE [Concomitant]
     Active Substance: CALCIUM CHLORIDE\POTASSIUM CHLORIDE\SODIUM CHLORIDE
     Route: 065
  7. PALONOSETRON HYDROCHLORIDE [Concomitant]
     Active Substance: PALONOSETRON HYDROCHLORIDE
     Indication: Vomiting
     Route: 065
     Dates: start: 20201202, end: 20201203
  8. RABEPRAZOLE SODIUM [Concomitant]
     Active Substance: RABEPRAZOLE SODIUM
     Route: 065
     Dates: start: 20201201, end: 20201202
  9. RABEPRAZOLE SODIUM [Concomitant]
     Active Substance: RABEPRAZOLE SODIUM
     Route: 065
     Dates: start: 20210116, end: 20210116
  10. DEXAMETHASONE SODIUM PHOSPHATE [Concomitant]
     Active Substance: DEXAMETHASONE SODIUM PHOSPHATE
     Dosage: 15 MILLIGRAM DAILY;
     Route: 030
     Dates: start: 20201201, end: 20201202
  11. DEXAMETHASONE SODIUM PHOSPHATE [Concomitant]
     Active Substance: DEXAMETHASONE SODIUM PHOSPHATE
     Dosage: 5 MILLIGRAM DAILY;
     Route: 030
     Dates: start: 20201221, end: 20201221
  12. DEXAMETHASONE SODIUM PHOSPHATE [Concomitant]
     Active Substance: DEXAMETHASONE SODIUM PHOSPHATE
     Dosage: 5 MILLIGRAM DAILY;
     Route: 030
     Dates: start: 20201226, end: 20201226
  13. DEXAMETHASONE SODIUM PHOSPHATE [Concomitant]
     Active Substance: DEXAMETHASONE SODIUM PHOSPHATE
     Dosage: 5 MILLIGRAM DAILY;
     Route: 042
     Dates: start: 20210106, end: 20210106
  14. DEXAMETHASONE SODIUM PHOSPHATE [Concomitant]
     Active Substance: DEXAMETHASONE SODIUM PHOSPHATE
     Dosage: 5 MILLIGRAM DAILY;
     Route: 042
     Dates: start: 20210115, end: 20210115
  15. DEXAMETHASONE SODIUM PHOSPHATE [Concomitant]
     Active Substance: DEXAMETHASONE SODIUM PHOSPHATE
     Dosage: 5 MILLIGRAM DAILY;
     Route: 042
     Dates: start: 20210117, end: 20210117
  16. PROMETHAZINE [Concomitant]
     Active Substance: PROMETHAZINE HYDROCHLORIDE
     Indication: Anti-infective therapy
     Dosage: 25 MILLIGRAM DAILY; ROUTE: INTRAMURAL
     Dates: start: 20201201, end: 20201202
  17. PROMETHAZINE [Concomitant]
     Active Substance: PROMETHAZINE HYDROCHLORIDE
     Dosage: 25 MILLIGRAM DAILY; ROUTE: INTRAMURAL
     Dates: start: 20201221, end: 20201221
  18. PROMETHAZINE [Concomitant]
     Active Substance: PROMETHAZINE HYDROCHLORIDE
     Dosage: 25 MILLIGRAM DAILY; ROUTE: INTRAMURAL
     Dates: start: 20201229, end: 20201229
  19. PROMETHAZINE [Concomitant]
     Active Substance: PROMETHAZINE HYDROCHLORIDE
     Dosage: 25 MILLIGRAM DAILY; ROUTE: INTRAMURAL
     Dates: start: 20210106, end: 20210106
  20. PROMETHAZINE [Concomitant]
     Active Substance: PROMETHAZINE HYDROCHLORIDE
     Dosage: ROUTE: INTRAMURAL
     Dates: start: 20200117, end: 20200117
  21. DICLOFENAC SODIUM [Concomitant]
     Active Substance: DICLOFENAC SODIUM
     Route: 065
     Dates: start: 20201201, end: 20201202
  22. HYDROCORTISONE [Concomitant]
     Active Substance: HYDROCORTISONE
     Dosage: 100 MILLIGRAM DAILY;
     Route: 042
     Dates: start: 20201201, end: 20201201
  23. CALCIUM CHLORIDE [Concomitant]
     Active Substance: CALCIUM CHLORIDE
     Route: 065
  24. POTASSIUM CHLORIDE [Concomitant]
     Active Substance: POTASSIUM CHLORIDE
     Route: 065
  25. LENOGRASTIM [Concomitant]
     Active Substance: LENOGRASTIM
     Route: 065
     Dates: start: 20201225, end: 20201229
  26. LENOGRASTIM [Concomitant]
     Active Substance: LENOGRASTIM
     Route: 065
     Dates: start: 20201204, end: 20201204
  27. FAT EMULSION NOS [Concomitant]
     Active Substance: EGG PHOSPHOLIPIDS\SAFFLOWER OIL\SOYBEAN OIL
     Route: 065
     Dates: start: 20201221, end: 20210115
  28. POTASSIUM CHLORIDE [Concomitant]
     Active Substance: POTASSIUM CHLORIDE
     Route: 065
     Dates: start: 20201221, end: 20201231
  29. SODIUM CHLORIDE [Concomitant]
     Active Substance: SODIUM CHLORIDE
     Route: 065
     Dates: start: 20201221, end: 20201231
  30. POTASSIUM CHLORIDE EXTENDED RELEASE [Concomitant]
     Active Substance: POTASSIUM CHLORIDE
     Indication: Supplementation therapy
     Route: 065
     Dates: start: 20201225, end: 20210116
  31. ALBUMIN HUMAN [Concomitant]
     Active Substance: ALBUMIN HUMAN
     Indication: Supplementation therapy
     Route: 065
     Dates: start: 20201224, end: 20201227
  32. SODIUM BICARBONATE [Concomitant]
     Active Substance: SODIUM BICARBONATE
     Indication: Therapeutic gargle
     Route: 065
     Dates: start: 20201226, end: 20201228
  33. SODIUM BICARBONATE [Concomitant]
     Active Substance: SODIUM BICARBONATE
     Route: 065
     Dates: start: 20201231, end: 20201231
  34. PROMETHAZINE HYDROCHLORIDE [Concomitant]
     Active Substance: PROMETHAZINE HYDROCHLORIDE
     Route: 065
     Dates: start: 20201226, end: 20201226
  35. VITAMIN B12 [Concomitant]
     Active Substance: CYANOCOBALAMIN
     Indication: Vitamin supplementation
  36. OCTREOTIDE ACETATE [Concomitant]
     Active Substance: OCTREOTIDE ACETATE
     Indication: Haemostasis
     Route: 065
     Dates: start: 20210115, end: 20210120
  37. FUROSEMIDE [Concomitant]
     Active Substance: FUROSEMIDE
     Indication: Polyuria
     Route: 065
     Dates: start: 20210105, end: 20210105
  38. ESTAZOLAM [Concomitant]
     Active Substance: ESTAZOLAM
     Route: 065
     Dates: start: 20210105, end: 20210105
  39. ESTAZOLAM [Concomitant]
     Active Substance: ESTAZOLAM
     Route: 065
     Dates: start: 20210105, end: 20210105
  40. ESTAZOLAM [Concomitant]
     Active Substance: ESTAZOLAM
     Route: 065
     Dates: start: 20210120, end: 20210120
  41. TRAMADAOL HYDROCHLORIDE [Concomitant]
     Route: 065
     Dates: start: 20210106, end: 20210106
  42. TRAMADAOL HYDROCHLORIDE [Concomitant]
     Route: 065
     Dates: start: 20210108, end: 20210109
  43. TRAMADAOL HYDROCHLORIDE [Concomitant]
     Route: 065
     Dates: start: 20210115, end: 20210115
  44. ESOMEPRAZOLE SODIUM [Concomitant]
     Active Substance: ESOMEPRAZOLE SODIUM
     Dates: start: 20210117, end: 20210117
  45. ETHYLENEDIAMINE DIACETURATE [Concomitant]
     Indication: Haemostasis
     Route: 065
     Dates: start: 20210117, end: 20210118
  46. PLATELETS [Concomitant]
     Active Substance: HUMAN PLATELET, ALLOGENIC
     Route: 065
  47. INSULIN NOS [Concomitant]
     Active Substance: INSULIN NOS
     Indication: Hypoglycaemia
     Dosage: INSULIN INJECTION
     Route: 065
     Dates: start: 20201221, end: 20201223
  48. INSULIN NOS [Concomitant]
     Active Substance: INSULIN NOS
     Route: 065
     Dates: start: 20201225, end: 20201225
  49. INSULIN NOS [Concomitant]
     Active Substance: INSULIN NOS
     Route: 065
     Dates: start: 20210116, end: 20210118
  50. INSULIN NOS [Concomitant]
     Active Substance: INSULIN NOS
     Route: 065
     Dates: start: 20210121, end: 20210122
  51. FILGRASTIM [Concomitant]
     Active Substance: FILGRASTIM
     Indication: Leukopenia
     Dosage: RECOMBINANT HUMAN GRANULOCYTE COLONY STIMULATING FACTOR
     Route: 065
     Dates: start: 20201204, end: 20201204
  52. FILGRASTIM [Concomitant]
     Active Substance: FILGRASTIM
     Route: 065
     Dates: start: 20201225, end: 20201229
  53. FILGRASTIM [Concomitant]
     Active Substance: FILGRASTIM
     Route: 065
     Dates: start: 20201229, end: 20201229

REACTIONS (2)
  - Thrombocytopenia [Not Recovered/Not Resolved]
  - Pneumonia [Not Recovered/Not Resolved]

NARRATIVE: CASE EVENT DATE: 20201221
